FAERS Safety Report 8616082-7 (Version None)
Quarter: 2012Q3

REPORT INFORMATION
  Report Type: 
  Country: None (occurrence: None)
  Receive Date: 20120823
  Receipt Date: 20120813
  Transmission Date: 20120928
  Serious: Yes (Hospitalization, Other)
  Sender: FDA-Public Use
  Company Number: US-PFIZER INC-2011003317

PATIENT
  Age: 55 Year
  Sex: Male
  Weight: 130.6 kg

DRUGS (12)
  1. PLAVIX [Concomitant]
     Indication: STENT PLACEMENT
     Dosage: UNK
     Route: 048
  2. VIAGRA [Suspect]
     Dosage: 100 MG, AS NEEDED
     Route: 048
     Dates: start: 20101101
  3. CRESTOR [Concomitant]
     Indication: BLOOD CHOLESTEROL INCREASED
     Dosage: 10 MG, 1X/DAY
     Route: 048
  4. MICARDIS [Concomitant]
     Indication: HYPERTENSION
     Dosage: 80 MG, 1X/DAY
     Route: 048
  5. MICARDIS [Concomitant]
     Dosage: 80 MG, 1X/DAY
  6. PLAVIX [Concomitant]
     Indication: CARDIAC DISORDER
  7. BYSTOLIC [Concomitant]
     Indication: HYPERTENSION
     Dosage: 10 MG, UNK
  8. CIALIS [Suspect]
     Indication: ERECTILE DYSFUNCTION
     Dosage: UNK
  9. METOPROLOL [Concomitant]
     Indication: HYPERTENSION
     Dosage: 20 MG, 2X/DAY
  10. ZANTAC [Concomitant]
     Indication: GASTROOESOPHAGEAL REFLUX DISEASE
     Dosage: UNK
  11. VIAGRA [Suspect]
     Indication: ERECTILE DYSFUNCTION
     Dosage: 100 MG, AS NEEDED
     Route: 048
     Dates: start: 20100428
  12. ASPIRIN [Concomitant]
     Indication: ANTIPLATELET THERAPY
     Dosage: 81 MG, 1X/DAY

REACTIONS (9)
  - BILIARY TRACT INFECTION [None]
  - BACK PAIN [None]
  - DRUG INEFFECTIVE [None]
  - STAPHYLOCOCCAL INFECTION [None]
  - BILE DUCT STONE [None]
  - VISION BLURRED [None]
  - CARDIAC DISORDER [None]
  - ABDOMINAL PAIN UPPER [None]
  - MALAISE [None]
